FAERS Safety Report 5038406-2 (Version None)
Quarter: 2006Q2

REPORT INFORMATION
  Report Type: 
  Country: None (occurrence: None)
  Receive Date: 20060626
  Receipt Date: 20060626
  Transmission Date: 20061013
  Serious: Yes (Hospitalization)
  Sender: FDA-Public Use
  Company Number: None

PATIENT
  Sex: Female

DRUGS (1)
  1. DEMEROL [Suspect]
     Indication: COLONOSCOPY
     Dosage: 50 MG 1 IV
     Route: 042
     Dates: start: 20060614

REACTIONS (3)
  - CATATONIA [None]
  - MOVEMENT DISORDER [None]
  - UNRESPONSIVE TO VERBAL STIMULI [None]
